FAERS Safety Report 6785691-2 (Version None)
Quarter: 2010Q2

REPORT INFORMATION
  Report Type: 
  Country: None (occurrence: None)
  Receive Date: 20100621
  Receipt Date: 20100621
  Transmission Date: 20101027
  Serious: Yes (Hospitalization)
  Sender: FDA-Public Use
  Company Number: None

PATIENT
  Age: 92 Year
  Sex: Female
  Weight: 55.6 kg

DRUGS (11)
  1. COUMADIN [Suspect]
     Indication: CORONARY ARTERY DISEASE
     Dosage: 2.5MG DAILY PO CHRONIC
     Route: 048
  2. ASPIRIN [Suspect]
     Dosage: 81MG DAILY PO
     Route: 048
  3. ISOSORBIDE DINITRATE [Concomitant]
  4. NAMENDA [Concomitant]
  5. M.V.I. [Concomitant]
  6. LACTULOSE [Concomitant]
  7. PROTONIX [Concomitant]
  8. CALCIUM CARBONATE [Concomitant]
  9. COLACE [Concomitant]
  10. ARICEPT [Concomitant]
  11. NOVOLOG [Concomitant]

REACTIONS (2)
  - HAEMOGLOBIN DECREASED [None]
  - INTERNATIONAL NORMALISED RATIO INCREASED [None]
